FAERS Safety Report 11151447 (Version 1)
Quarter: 2015Q2

REPORT INFORMATION
  Report Type: Spontaneous
  Country: NO (occurrence: NO)
  Receive Date: 20150601
  Receipt Date: 20150601
  Transmission Date: 20150821
  Serious: Yes (Hospitalization, Other)
  Sender: FDA-Public Use
  Company Number: NO-PFIZER INC-2015179530

PATIENT
  Age: 50 Year
  Sex: Female

DRUGS (4)
  1. TAZOCIN [Suspect]
     Active Substance: PIPERACILLIN SODIUM\TAZOBACTAM SODIUM
     Indication: INFECTION
     Dosage: 4 G, 3X/DAY
     Route: 042
     Dates: start: 20150317, end: 20150329
  2. IMUREL [Concomitant]
     Active Substance: AZATHIOPRINE SODIUM
     Dosage: 50 MG, 1X/DAY
     Route: 048
     Dates: start: 20150224, end: 20150310
  3. REMSIMA [Concomitant]
     Indication: COLITIS ULCERATIVE
     Dosage: 300 MG, SINGLE
     Route: 042
     Dates: start: 20150224, end: 20150224
  4. MEROPENEM. [Suspect]
     Active Substance: MEROPENEM
     Indication: INFECTION
     Dosage: 500 MG, 3X/DAY
     Route: 042
     Dates: start: 20150313, end: 20150317

REACTIONS (5)
  - Hepatitis [Recovering/Resolving]
  - Cardiac failure [Unknown]
  - Respiratory failure [Unknown]
  - Hepatic encephalopathy [Recovering/Resolving]
  - Hepatic failure [Recovering/Resolving]

NARRATIVE: CASE EVENT DATE: 201503
